FAERS Safety Report 4539817-1 (Version None)
Quarter: 2004Q4

REPORT INFORMATION
  Report Type: 
  Country: None (occurrence: None)
  Receive Date: 20041222
  Receipt Date: 20041209
  Transmission Date: 20050328
  Serious: Yes (Other)
  Sender: FDA-Public Use
  Company Number: USA041285757

PATIENT
  Age: 76 Year
  Sex: Male

DRUGS (1)
  1. HUMULIN N [Suspect]
     Dosage: 48 U DAY
     Dates: start: 19800101

REACTIONS (4)
  - CATARACT OPERATION [None]
  - EYE DISORDER [None]
  - FATIGUE [None]
  - MENTAL DISORDER [None]
